FAERS Safety Report 12994152 (Version 1)
Quarter: 2016Q4

REPORT INFORMATION
  Report Type: Spontaneous
  Country: US (occurrence: US)
  Receive Date: 20161202
  Receipt Date: 20161202
  Transmission Date: 20170207
  Serious: No
  Sender: FDA-Public Use
  Company Number: US-PFIZER INC-2016551892

PATIENT
  Sex: Male

DRUGS (3)
  1. NEURONTIN [Suspect]
     Active Substance: GABAPENTIN
     Indication: RESTLESS LEGS SYNDROME
     Dosage: TAKING UP TO 6000 MG
  2. NEURONTIN [Suspect]
     Active Substance: GABAPENTIN
     Indication: BIPOLAR DISORDER
  3. NEURONTIN [Suspect]
     Active Substance: GABAPENTIN
     Indication: DEPRESSION SUICIDAL

REACTIONS (3)
  - Drug tolerance increased [Unknown]
  - Overdose [Unknown]
  - Product use issue [Unknown]
